FAERS Safety Report 6419603-8 (Version None)
Quarter: 2009Q4

REPORT INFORMATION
  Report Type: 
  Country: None (occurrence: None)
  Receive Date: 20091029
  Receipt Date: 20091020
  Transmission Date: 20100525
  Serious: Yes (Other)
  Sender: FDA-Public Use
  Company Number: BE-ASTRAZENECA-2009SE12572

PATIENT
  Age: 637 Month
  Sex: Male

DRUGS (3)
  1. PULMICORT [Suspect]
     Indication: ASTHMA
     Dosage: 3 PUFFS
     Route: 055
  2. SEREVENT [Concomitant]
     Indication: ASTHMA
     Dosage: 2X1 / DAY
     Route: 055
  3. STEOVIT [Concomitant]
     Indication: PROPHYLAXIS
     Dosage: 1X/ DAY
     Route: 048
     Dates: start: 20070101

REACTIONS (1)
  - HEPATITIS [None]
